FAERS Safety Report 10572165 (Version 1)
Quarter: 2014Q4

REPORT INFORMATION
  Report Type: Spontaneous
  Country: JP (occurrence: US)
  Receive Date: 20141108
  Receipt Date: 20141108
  Transmission Date: 20150529
  Serious: No
  Sender: FDA-Public Use
  Company Number: US-ASTRAZENECA-2014SE84632

PATIENT
  Age: 70 Year
  Sex: Female

DRUGS (2)
  1. PL COMBINATION GRANULES [Concomitant]
  2. CANDESARTAN [Suspect]
     Active Substance: CANDESARTAN
     Indication: HYPERTENSION
     Route: 048
     Dates: start: 20141018, end: 20141024

REACTIONS (2)
  - Eczema [Recovering/Resolving]
  - Eye swelling [Unknown]

NARRATIVE: CASE EVENT DATE: 20141018
